FAERS Safety Report 5179715-6 (Version None)
Quarter: 2006Q4

REPORT INFORMATION
  Report Type: 
  Country: None (occurrence: None)
  Receive Date: 20061212
  Receipt Date: 20061127
  Transmission Date: 20070319
  Serious: Yes (Hospitalization)
  Sender: FDA-Public Use
  Company Number: 8019936

PATIENT
  Sex: Male

DRUGS (1)
  1. KEPPRA [Suspect]
     Dosage: IV
     Route: 042

REACTIONS (4)
  - BLOOD DISORDER [None]
  - BONE MARROW TRANSPLANT [None]
  - HAEMODIALYSIS [None]
  - MULTI-ORGAN FAILURE [None]
